FAERS Safety Report 16257481 (Version 1)
Quarter: 2019Q2

REPORT INFORMATION
  Report Type: Spontaneous
  Country: JP (occurrence: JP)
  Receive Date: 20190430
  Receipt Date: 20190430
  Transmission Date: 20190711
  Serious: Yes (Other)
  Sender: FDA-Public Use
  Company Number: JP-PFIZER INC-2019186738

PATIENT
  Age: 79 Year
  Sex: Female

DRUGS (6)
  1. LOXOPROFEN SODIUM [Concomitant]
     Active Substance: LOXOPROFEN SODIUM
     Dosage: UNK UNK, UNKNOWN FREQ.
     Route: 065
  2. POULTICE [Concomitant]
     Dosage: UNK
     Dates: start: 20190219
  3. CELECOX [Suspect]
     Active Substance: CELECOXIB
     Indication: SPINAL DEFORMITY
     Dosage: 100 MG, 2X/DAY
     Route: 048
     Dates: start: 20190219
  4. EPERISONE HYDROCHLORIDE [Suspect]
     Active Substance: EPERISONE HYDROCHLORIDE
     Indication: SPINAL DEFORMITY
     Dosage: 50 MG, 3X/DAY
     Route: 048
     Dates: start: 20190219
  5. RINDERON V [Concomitant]
     Active Substance: BETAMETHASONE VALERATE
     Dosage: UNK UNK, UNKNOWN FREQ.
     Route: 065
  6. TEPRENONE [Suspect]
     Active Substance: TEPRENONE
     Indication: PROPHYLAXIS
     Dosage: 50 MG, 2X/DAY
     Route: 048
     Dates: start: 20190219

REACTIONS (1)
  - Toxic skin eruption [Recovering/Resolving]

NARRATIVE: CASE EVENT DATE: 20190301
